FAERS Safety Report 4320918-8 (Version None)
Quarter: 2004Q1

REPORT INFORMATION
  Report Type: 
  Country: None (occurrence: None)
  Receive Date: 20040318
  Receipt Date: 20040304
  Transmission Date: 20041129
  Serious: Yes (Hospitalization)
  Sender: FDA-Public Use
  Company Number: 205091

PATIENT
  Age: 57 Year
  Sex: Female

DRUGS (4)
  1. MABTHERA(RITUXIMAB) CONC FOR SOLUTION FOR INFUSION MABTHERA(RITUXIMAB) [Suspect]
     Indication: NON-HODGKIN'S LYMPHOMA
     Dosage: 375 MG/M2, INTRAVENOUS; 375 MG/M2, 1/WEEK INTRAVENOUS; 375 MG/M2, 1/WEEK, INTRAVENOUS
     Route: 042
     Dates: start: 20020301
  2. MABTHERA(RITUXIMAB) CONC FOR SOLUTION FOR INFUSION MABTHERA(RITUXIMAB) [Suspect]
     Indication: NON-HODGKIN'S LYMPHOMA
     Dosage: 375 MG/M2, INTRAVENOUS; 375 MG/M2, 1/WEEK INTRAVENOUS; 375 MG/M2, 1/WEEK, INTRAVENOUS
     Route: 042
     Dates: start: 20021001
  3. MABTHERA(RITUXIMAB) CONC FOR SOLUTION FOR INFUSION MABTHERA(RITUXIMAB) [Suspect]
     Indication: NON-HODGKIN'S LYMPHOMA
     Dosage: 375 MG/M2, INTRAVENOUS; 375 MG/M2, 1/WEEK INTRAVENOUS; 375 MG/M2, 1/WEEK, INTRAVENOUS
     Route: 042
     Dates: start: 20030501
  4. MABTHERA(RITUXIMAB) CONC FOR SOLUTION FOR INFUSION MABTHERA(RITUXIMAB) [Suspect]
     Indication: NON-HODGKIN'S LYMPHOMA
     Dosage: 375 MG/M2, INTRAVENOUS; 375 MG/M2, 1/WEEK INTRAVENOUS; 375 MG/M2, 1/WEEK, INTRAVENOUS
     Route: 042
     Dates: start: 20040101

REACTIONS (10)
  - ARRHYTHMIA [None]
  - CARDIAC VENTRICULAR DISORDER [None]
  - HEADACHE [None]
  - INFUSION RELATED REACTION [None]
  - LUNG DISORDER [None]
  - PULMONARY EMBOLISM [None]
  - PULMONARY VASCULITIS [None]
  - RENAL IMPAIRMENT [None]
  - THROMBOCYTOPENIA [None]
  - VASCULITIS GASTROINTESTINAL [None]
